FAERS Safety Report 7305900-0 (Version None)
Quarter: 2011Q1

REPORT INFORMATION
  Report Type: 
  Country: None (occurrence: None)
  Receive Date: 20110222
  Receipt Date: 20110211
  Transmission Date: 20110831
  Serious: Yes (Other)
  Sender: FDA-Public Use
  Company Number: CA-JNJFOC-20110200595

PATIENT
  Sex: Female
  Weight: 55 kg

DRUGS (2)
  1. REMICADE [Suspect]
     Dosage: 2 ND INFUSION
     Route: 042
  2. REMICADE [Suspect]
     Indication: CROHN'S DISEASE
     Dosage: 2 ND INFUSION
     Route: 042

REACTIONS (5)
  - MYALGIA [None]
  - NASOPHARYNGITIS [None]
  - BURNING SENSATION [None]
  - CENTRAL VENOUS CATHETERISATION [None]
  - BLOOD PRESSURE DECREASED [None]
